FAERS Safety Report 7145169-3 (Version None)
Quarter: 2010Q4

REPORT INFORMATION
  Report Type: 
  Country: None (occurrence: None)
  Receive Date: 20101124
  Receipt Date: 20101111
  Transmission Date: 20110411
  Serious: Yes (Other)
  Sender: FDA-Public Use
  Company Number: 2010-3906

PATIENT
  Age: 80 Year
  Sex: Female

DRUGS (5)
  1. SOMATULINE DEPOT [Suspect]
     Indication: ACROMEGALY
     Dosage: 60 MG (60 MG, EVERY 4 TO 6 WEEKS), SUBCUTANEOUS
     Route: 058
  2. OCTREOTIDE ACETATE [Concomitant]
  3. LOSARTAN/HYDROCHLOTIAZIDE (HYZAAR) [Concomitant]
  4. LERCANIDIPIN (LERCANIDIPINE) [Concomitant]
  5. METHIMAZOLE [Concomitant]

REACTIONS (8)
  - ERYTHEMA [None]
  - FAT NECROSIS [None]
  - GASTROINTESTINAL DISORDER [None]
  - HAEMORRHAGIC STROKE [None]
  - INJECTION SITE INDURATION [None]
  - INJECTION SITE PAIN [None]
  - MYOCARDIAL INFARCTION [None]
  - SKIN NECROSIS [None]
